FAERS Safety Report 9995349 (Version 1)
Quarter: 2014Q1

REPORT INFORMATION
  Report Type: Spontaneous
  Country: US (occurrence: None)
  Receive Date: 20140214
  Receipt Date: 20140214
  Transmission Date: 20141002
  Serious: No
  Sender: FDA-Public Use
  Company Number: US-013521

PATIENT
  Age: 22 Year
  Sex: Male
  Weight: 108.86 kg

DRUGS (4)
  1. PICO-SALAX [Suspect]
     Indication: BOWEL PREPARATION
     Dosage: FIRST PACKET AT 4PM ON 03NOV2013, DUE TO TAKE SECOND PACKET AT 10PM ON 03-NOV-2013
     Dates: start: 20131103
  2. METHYLPHENIDATE [Concomitant]
  3. METAMUCIL [Concomitant]
  4. COLACE [Concomitant]

REACTIONS (2)
  - Treatment noncompliance [None]
  - No adverse event [None]
